FAERS Safety Report 16297087 (Version 1)
Quarter: 2019Q2

REPORT INFORMATION
  Report Type: Spontaneous
  Country: PR (occurrence: PR)
  Receive Date: 20190509
  Receipt Date: 20190509
  Transmission Date: 20190711
  Serious: No
  Sender: FDA-Public Use
  Company Number: None

PATIENT
  Age: 45 Year
  Sex: Female
  Weight: 77.85 kg

DRUGS (1)
  1. ERTAPENEM. [Suspect]
     Active Substance: ERTAPENEM SODIUM
     Indication: ABSCESS LIMB
     Route: 041
     Dates: start: 20190502, end: 20190503

REACTIONS (3)
  - Rash generalised [None]
  - Therapy cessation [None]
  - Pruritus [None]

NARRATIVE: CASE EVENT DATE: 20190504
